FAERS Safety Report 8515737-2 (Version None)
Quarter: 2012Q3

REPORT INFORMATION
  Report Type: 
  Country: None (occurrence: None)
  Receive Date: 20120717
  Receipt Date: 20120713
  Transmission Date: 20120928
  Serious: Yes (Hospitalization, Other)
  Sender: FDA-Public Use
  Company Number: PHEH2007US15445

PATIENT
  Sex: Female
  Weight: 68.027 kg

DRUGS (82)
  1. AREDIA [Suspect]
  2. REVLIMID [Concomitant]
     Dates: end: 20070701
  3. POTASSIUM CHLORIDE [Concomitant]
  4. TEMAZEPAM [Concomitant]
  5. PROTONIX [Concomitant]
  6. LISINOPRIL [Concomitant]
  7. HYDROCHLOROTHIAZIDE [Concomitant]
  8. DEXAMETHASONE [Concomitant]
  9. PRAVASTATIN [Concomitant]
     Dosage: 80 MG, ONCE/SINGLE
  10. ASPIRIN [Concomitant]
     Dosage: 81 MG, ONCE/SINGLE
  11. LIPITOR [Concomitant]
     Dosage: 40 MG, ONCE/SINGLE
  12. VALIUM [Concomitant]
  13. QUININE SULFATE [Concomitant]
     Indication: MUSCLE SPASMS
     Dosage: 260 MG, PRN
     Route: 048
  14. NAPROXEN (ALEVE) [Concomitant]
  15. ROPINIROLE HYDROCHLORIDE [Concomitant]
  16. XANAX [Concomitant]
  17. DESIPRAMINE HCL [Concomitant]
  18. ZITHROMAX [Concomitant]
  19. DECADRON [Concomitant]
  20. ZOCOR [Concomitant]
     Dosage: 40 MG, BID
  21. GABAPENTIN [Concomitant]
  22. FEXOFENADINE HYDROCHLORIDE [Concomitant]
  23. ANTINEOPLASTIC AGENTS [Concomitant]
  24. RADIATION THERAPY [Concomitant]
  25. PRAVACHOL [Concomitant]
  26. OXYCONTIN [Concomitant]
  27. ZOLOFT [Concomitant]
     Dosage: 50 MG, BID
  28. VALTREX [Concomitant]
  29. ZETIA [Concomitant]
     Dosage: 10 MG, ONCE/SINGLE
  30. LORAZEPAM [Concomitant]
     Dosage: 7 MG, PRN
  31. ZANTAC [Concomitant]
  32. ATIVAN [Concomitant]
     Dosage: 1 MG, BID
  33. FUROSEMIDE [Concomitant]
  34. CEFUROXIME [Concomitant]
  35. OMEPRAZOLE [Concomitant]
  36. POTASSIUM CHLORIDE [Concomitant]
  37. PRINZIDE [Concomitant]
  38. RANITIDINE [Concomitant]
     Dosage: 150 MG, ONCE/SINGLE
  39. PROCRIT                            /00909301/ [Concomitant]
  40. RESTORIL [Concomitant]
  41. ZOLEDRONOC ACID [Concomitant]
  42. THALIDOMIDE [Concomitant]
  43. PRAVASTATIN SODIUM [Concomitant]
  44. LEVAQUIN [Concomitant]
  45. LORATADINE [Concomitant]
  46. OXYCODONE HCL [Concomitant]
     Dosage: 40 MG, BID
  47. CYMBALTA [Concomitant]
  48. ROXICODONE [Concomitant]
     Dosage: 5 MG, PRN
  49. GLYBURIDE [Concomitant]
     Dosage: 5 MG, ONCE/SINGLE
  50. STEROIDS NOS [Concomitant]
  51. TEQUIN [Concomitant]
     Dosage: 400 MG, ONCE/SINGLE
  52. ATENOLOL [Concomitant]
     Dosage: 50 MG, ONCE/SINGLE
  53. ROXICET [Concomitant]
  54. ALENDRONATE SODIUM [Concomitant]
  55. PROMETHAZINE [Concomitant]
  56. NOVOLIN 70/30 [Concomitant]
  57. PERCOCET [Concomitant]
  58. POTASSIUM CHLORIDE [Concomitant]
     Dosage: 10 MG, ONCE/SINGLE
  59. VELCADE [Concomitant]
     Route: 042
  60. CYTOXAN [Concomitant]
  61. DEPO-MEDROL [Concomitant]
  62. SERTRALINE HYDROCHLORIDE [Concomitant]
  63. ZOMETA [Suspect]
  64. ARANESP [Concomitant]
  65. OXYCODONE HCL AND ACETAMINOPHEN [Concomitant]
  66. PANTOPRAZOLE [Concomitant]
     Dosage: 40 MG, ONCE/SINGLE
  67. NEURONTIN [Concomitant]
     Dosage: 300 MG, TID
     Route: 048
  68. CIPROFLOXACIN [Concomitant]
  69. NITROFURANTOIN [Concomitant]
  70. IPRATROPIUM BROMIDE [Concomitant]
  71. MACROBID [Concomitant]
  72. ZOLOFT [Concomitant]
     Dosage: 100 MG /  DAILY
  73. REQUIP [Concomitant]
  74. MORPHINE SULFATE (AVINZA ER) [Concomitant]
     Dosage: 60 MG, BID
  75. NITROFURAN [Concomitant]
     Dosage: 100 MG, BID
  76. PHENERGAN VC [Concomitant]
  77. PAMIDRONATE DISODIUM [Concomitant]
  78. ACYCLOVIR [Concomitant]
     Dosage: 800 MG, ONCE/SINGLE
     Route: 048
  79. DILAUDID [Concomitant]
     Indication: PAIN
     Dosage: 2 MG, ONCE/SINGLE
  80. COMPRO [Concomitant]
  81. PREDNISONE [Concomitant]
  82. ENABLEX [Concomitant]

REACTIONS (52)
  - INTERVERTEBRAL DISC DISORDER [None]
  - CARDIAC FAILURE CONGESTIVE [None]
  - OSTEONECROSIS OF JAW [None]
  - GROIN PAIN [None]
  - JOINT EFFUSION [None]
  - MULTIPLE MYELOMA [None]
  - THROMBOCYTOPENIA [None]
  - SPINAL DISORDER [None]
  - ARTHRALGIA [None]
  - DIZZINESS [None]
  - HAEMATURIA [None]
  - ANAEMIA [None]
  - BONE MARROW FAILURE [None]
  - SPINAL COLUMN STENOSIS [None]
  - DIABETES MELLITUS [None]
  - MYALGIA [None]
  - NAIL DYSTROPHY [None]
  - ANXIETY [None]
  - FACIAL PAIN [None]
  - ONYCHOMYCOSIS [None]
  - BIOPSY BONE MARROW ABNORMAL [None]
  - LUMBAR VERTEBRAL FRACTURE [None]
  - PLASMACYTOMA [None]
  - NEUROFIBROMA [None]
  - SPINAL OSTEOARTHRITIS [None]
  - SPLENOMEGALY [None]
  - TRACHEOBRONCHITIS [None]
  - OSTEOMYELITIS [None]
  - DYSPHONIA [None]
  - BACK PAIN [None]
  - PATELLA FRACTURE [None]
  - CYSTITIS NONINFECTIVE [None]
  - PLASMACYTOSIS [None]
  - PNEUMONIA [None]
  - DENTAL CARIES [None]
  - NEUROPATHY PERIPHERAL [None]
  - PAIN IN EXTREMITY [None]
  - FALL [None]
  - ONYCHALGIA [None]
  - INFLAMMATION [None]
  - RENAL FAILURE [None]
  - LEUKOPENIA [None]
  - RADICULAR PAIN [None]
  - INJURY [None]
  - PAIN [None]
  - WEIGHT INCREASED [None]
  - TENDON DISORDER [None]
  - INFECTION [None]
  - BONE DISORDER [None]
  - PARAESTHESIA [None]
  - OEDEMA PERIPHERAL [None]
  - PRURITUS [None]
